FAERS Safety Report 4429952-0 (Version None)
Quarter: 2004Q3

REPORT INFORMATION
  Report Type: 
  Country: None (occurrence: None)
  Receive Date: 20040817
  Receipt Date: 20040802
  Transmission Date: 20050211
  Serious: Yes (Hospitalization)
  Sender: FDA-Public Use
  Company Number: 200989

PATIENT
  Age: 62 Year
  Sex: Female

DRUGS (5)
  1. AVONEX [Suspect]
     Indication: MULTIPLE SCLEROSIS
     Dosage: 30 MCG QW IM
     Route: 030
     Dates: start: 19980101
  2. INSULIN [Concomitant]
  3. DILTIAZEM [Concomitant]
  4. ZOCOR [Concomitant]
  5. TEGRETOL [Concomitant]

REACTIONS (1)
  - CORONARY ARTERY DISEASE [None]
